FAERS Safety Report 6964583-X (Version None)
Quarter: 2010Q3

REPORT INFORMATION
  Report Type: 
  Country: None (occurrence: None)
  Receive Date: 20100903
  Receipt Date: 20100806
  Transmission Date: 20110219
  Serious: Yes (Hospitalization)
  Sender: FDA-Public Use
  Company Number: US-BAYER-201031133NA

PATIENT
  Age: 40 Year
  Sex: Female

DRUGS (19)
  1. YAZ [Suspect]
     Dates: start: 20080701, end: 20100201
  2. ANTIBIOTICS [Concomitant]
  3. ASCORBIC ACID [Concomitant]
  4. LIPITOR [Concomitant]
     Dates: start: 20020101
  5. ADVIL LIQUI-GELS [Concomitant]
  6. ALEVE (CAPLET) [Concomitant]
  7. ASTELIN [Concomitant]
     Dates: start: 20040101
  8. FLUTICASONE PROPIONATE [Concomitant]
     Dates: start: 20040101
  9. ALLEGRA [Concomitant]
     Dates: start: 20040101
  10. LEXAPRO [Concomitant]
  11. OMEPRAZOLE [Concomitant]
  12. LIPITOR [Concomitant]
  13. FLUTICASONE PROPIONATE [Concomitant]
  14. ASTELIN [Concomitant]
  15. LEVAQUIN [Concomitant]
  16. DIFLORASONE DIACETATE [Concomitant]
  17. FLUCONAZOLE [Concomitant]
  18. BETAMETHASONE [Concomitant]
  19. SINGULAIR [Concomitant]

REACTIONS (5)
  - ABDOMINAL PAIN UPPER [None]
  - CHOLECYSTITIS CHRONIC [None]
  - CHOLELITHIASIS [None]
  - GALLBLADDER CHOLESTEROLOSIS [None]
  - NAUSEA [None]
